FAERS Safety Report 7792058-7 (Version None)
Quarter: 2011Q3

REPORT INFORMATION
  Report Type: 
  Country: None (occurrence: None)
  Receive Date: 20110930
  Receipt Date: 20110930
  Transmission Date: 20111222
  Serious: Yes (Hospitalization)
  Sender: FDA-Public Use
  Company Number: None

PATIENT

DRUGS (1)
  1. BOTOX [Suspect]
     Indication: SKIN COSMETIC PROCEDURE
     Dates: start: 20110701, end: 20110802

REACTIONS (5)
  - EYE SWELLING [None]
  - BUNDLE BRANCH BLOCK [None]
  - MASS [None]
  - ATRIAL FIBRILLATION [None]
  - HYPERTENSION [None]
